FAERS Safety Report 10259773 (Version 2)
Quarter: 2014Q2

REPORT INFORMATION
  Report Type: Spontaneous
  Country: US (occurrence: US)
  Receive Date: 20140625
  Receipt Date: 20140625
  Transmission Date: 20141212
  Serious: No
  Sender: FDA-Public Use
  Company Number: US-ASTELLAS-2014US003139

PATIENT
  Sex: Male

DRUGS (3)
  1. VESICARE [Suspect]
     Indication: MICTURITION URGENCY
     Route: 065
     Dates: start: 2012
  2. VESICARE [Suspect]
     Route: 065
  3. MYRBETRIQ [Suspect]
     Indication: MICTURITION URGENCY
     Dosage: UNK UNK, UNKNOWN FREQ.
     Route: 065

REACTIONS (2)
  - Dry mouth [Unknown]
  - Drug ineffective [Unknown]
